FAERS Safety Report 5758712-3 (Version None)
Quarter: 2008Q2

REPORT INFORMATION
  Report Type: 
  Country: None (occurrence: None)
  Receive Date: 20080603
  Receipt Date: 20080603
  Transmission Date: 20081010
  Serious: Yes (Hospitalization)
  Sender: FDA-Public Use
  Company Number: None

PATIENT
  Sex: Female

DRUGS (1)
  1. PACLITAXEL [Suspect]

REACTIONS (6)
  - HYPERTENSION [None]
  - LUPUS-LIKE SYNDROME [None]
  - NASAL OEDEMA [None]
  - NECK PAIN [None]
  - PAIN [None]
  - PAIN IN JAW [None]
